FAERS Safety Report 16897650 (Version 2)
Quarter: 2019Q4

REPORT INFORMATION
  Report Type: Spontaneous
  Country: JP (occurrence: JP)
  Receive Date: 20191009
  Receipt Date: 20191029
  Transmission Date: 20200122
  Serious: Yes (Hospitalization, Other)
  Sender: FDA-Public Use
  Company Number: JP-BRISTOL-MYERS SQUIBB COMPANY-BMS-2019-096760

PATIENT
  Age: 66 Year
  Sex: Male
  Weight: 66.6 kg

DRUGS (3)
  1. YERVOY [Suspect]
     Active Substance: IPILIMUMAB
     Indication: MALIGNANT MELANOMA
     Dosage: 2 COURSES OF COMBINATION THERAPY WITH NIVOLUMAB AND IPILIMUMAB
     Route: 041
  2. OPDIVO [Suspect]
     Active Substance: NIVOLUMAB
     Indication: MALIGNANT MELANOMA
     Dosage: 3 COURSES OF NIVOLUMAB MONOTHERAPY
     Route: 041
  3. OPDIVO [Suspect]
     Active Substance: NIVOLUMAB
     Indication: PRODUCT USED FOR UNKNOWN INDICATION
     Dosage: 2 COURSES OF COMBINATION THERAPY WITH NIVOLUMAB AND IPILIMUMAB
     Route: 065

REACTIONS (3)
  - Hypophysitis [Unknown]
  - Hypopituitarism [Unknown]
  - Enterocolitis [Unknown]
